FAERS Safety Report 5581784-6 (Version None)
Quarter: 2008Q1

REPORT INFORMATION
  Report Type: 
  Country: None (occurrence: None)
  Receive Date: 20080104
  Receipt Date: 20071228
  Transmission Date: 20080703
  Serious: Yes (Hospitalization, Other)
  Sender: FDA-Public Use
  Company Number: US-MERCK-0703USA03252

PATIENT
  Age: 66 Year
  Sex: Female

DRUGS (11)
  1. FOSAMAX [Suspect]
     Indication: OSTEOPENIA
     Route: 048
     Dates: start: 19971101, end: 19980505
  2. FOSAMAX [Suspect]
     Route: 048
     Dates: start: 19980701, end: 19980901
  3. FOSAMAX [Suspect]
     Route: 048
     Dates: start: 20010501, end: 20040401
  4. FOSAMAX [Suspect]
     Route: 048
     Dates: start: 20040401, end: 20060401
  5. FOSAMAX [Suspect]
     Indication: OSTEOPOROSIS
     Route: 048
     Dates: start: 19971101, end: 19980505
  6. FOSAMAX [Suspect]
     Route: 048
     Dates: start: 19980701, end: 19980901
  7. FOSAMAX [Suspect]
     Route: 048
     Dates: start: 20010501, end: 20040401
  8. FOSAMAX [Suspect]
     Route: 048
     Dates: start: 20040401, end: 20060401
  9. ATACAND [Concomitant]
     Indication: HYPERTENSION
     Route: 065
     Dates: start: 20011026, end: 20050101
  10. [THERAPY UNSPECIFIED] [Concomitant]
     Indication: BLOOD CHOLESTEROL
     Route: 065
     Dates: start: 19980101
  11. NARDIL [Concomitant]
     Route: 065
     Dates: start: 19910101

REACTIONS (38)
  - ANKLE FRACTURE [None]
  - ANXIETY [None]
  - BACK PAIN [None]
  - BAROTRAUMA [None]
  - BASAL CELL CARCINOMA [None]
  - BRAIN STEM INFARCTION [None]
  - BRONCHITIS [None]
  - CHEST PAIN [None]
  - CONFUSIONAL STATE [None]
  - DEPRESSION [None]
  - DIVERTICULUM [None]
  - DIZZINESS [None]
  - EMOTIONAL DISTRESS [None]
  - FACIAL BONES FRACTURE [None]
  - FALL [None]
  - FATIGUE [None]
  - FIBROMYALGIA [None]
  - FOOT FRACTURE [None]
  - GASTROOESOPHAGEAL REFLUX DISEASE [None]
  - HEADACHE [None]
  - HYPERLIPIDAEMIA [None]
  - INSOMNIA [None]
  - LACERATION [None]
  - LACUNAR INFARCTION [None]
  - LIPOMA [None]
  - MUSCULOSKELETAL CHEST PAIN [None]
  - ORTHOSTATIC HYPOTENSION [None]
  - OSTEOARTHRITIS [None]
  - OSTEOMYELITIS [None]
  - OSTEONECROSIS [None]
  - PELVIC FLOOR MUSCLE WEAKNESS [None]
  - RENAL FAILURE CHRONIC [None]
  - ROTATOR CUFF REPAIR [None]
  - SINUSITIS [None]
  - STRESS [None]
  - UPPER RESPIRATORY TRACT INFECTION [None]
  - VISION BLURRED [None]
  - WRIST FRACTURE [None]
